FAERS Safety Report 14670839 (Version 13)
Quarter: 2019Q2

REPORT INFORMATION
  Report Type: Spontaneous
  Country: US (occurrence: US)
  Receive Date: 20180322
  Receipt Date: 20190627
  Transmission Date: 20190711
  Serious: Yes (Other)
  Sender: FDA-Public Use
  Company Number: US-PFIZER INC-2018113863

PATIENT
  Age: 56 Year
  Sex: Female
  Weight: 67.12 kg

DRUGS (16)
  1. EMBEDA [Suspect]
     Active Substance: MORPHINE SULFATE\NALTREXONE HYDROCHLORIDE
     Indication: NEURALGIA
     Dosage: 1 DF, 2X/DAY
     Route: 048
  2. EMBEDA [Suspect]
     Active Substance: MORPHINE SULFATE\NALTREXONE HYDROCHLORIDE
     Dosage: 2 DF, DAILY(60COUNT AND 30 DAYS SUPPLY)
     Route: 048
  3. HYDROCODONE [Concomitant]
     Active Substance: HYDROCODONE
     Indication: PAIN
     Dosage: 10 MG, 3X/DAY (ONE EVERY 8 HOURS)
     Route: 048
  4. EMBEDA [Suspect]
     Active Substance: MORPHINE SULFATE\NALTREXONE HYDROCHLORIDE
     Dosage: UNK
     Route: 048
  5. EMBEDA [Suspect]
     Active Substance: MORPHINE SULFATE\NALTREXONE HYDROCHLORIDE
     Indication: MYALGIA
     Dosage: 20 MG, 2X/DAY (EVERY 12 HOURS)
     Route: 048
     Dates: start: 201801
  6. EMBEDA [Suspect]
     Active Substance: MORPHINE SULFATE\NALTREXONE HYDROCHLORIDE
     Dosage: 1.2 MG, DAILY (ONE CAPSULE BY MOUTH EVERY DAY FOR 20 DAYS)
     Route: 048
     Dates: start: 20190514
  7. EMBEDA [Suspect]
     Active Substance: MORPHINE SULFATE\NALTREXONE HYDROCHLORIDE
     Dosage: UNK
  8. CYCLOBENZAPRINE. [Concomitant]
     Active Substance: CYCLOBENZAPRINE
     Indication: NECK PAIN
     Dosage: 10 MG, 3X/DAY
  9. HYDRALAZINE [Concomitant]
     Active Substance: HYDRALAZINE HYDROCHLORIDE
     Indication: HYPERTENSION
     Dosage: 25 MG, AS NEEDED (ONE TABLET EVERY SIX HOURS AS NEEDED)
     Route: 048
  10. EMBEDA [Suspect]
     Active Substance: MORPHINE SULFATE\NALTREXONE HYDROCHLORIDE
     Indication: BONE PAIN
     Dosage: 10 MG, 1X/DAY
     Route: 048
     Dates: start: 20180113
  11. EMBEDA [Suspect]
     Active Substance: MORPHINE SULFATE\NALTREXONE HYDROCHLORIDE
     Indication: PAIN
     Dosage: UNK
     Route: 048
  12. EMBEDA [Suspect]
     Active Substance: MORPHINE SULFATE\NALTREXONE HYDROCHLORIDE
     Dosage: UNK
     Route: 048
  13. HYDROCODONE [Concomitant]
     Active Substance: HYDROCODONE
     Indication: BONE PAIN
     Dosage: 1 DF, AS NEEDED (10/325MG TABLET, 1 TABLET BY MOUTH EVERY 8 HOURS AS NEEDED) (1 OR 2 MG IN HER DOSE)
     Route: 048
     Dates: start: 1997
  14. BACLOFEN. [Concomitant]
     Active Substance: BACLOFEN
     Indication: MYALGIA
     Dosage: 20 MG, AS NEEDED (ONE TABLET AS NEEDED THREE TIME A DAY)
  15. BACLOFEN. [Concomitant]
     Active Substance: BACLOFEN
     Indication: NECK PAIN
  16. PROPRANOLOL [Concomitant]
     Active Substance: PROPRANOLOL HYDROCHLORIDE
     Indication: HYPERTENSION
     Dosage: 40 MG, AS NEEDED (40MG TABLET BY AS NEEDED, SUPPOSED TO BE TAKEN TWICE DAILY)

REACTIONS (13)
  - General physical health deterioration [Unknown]
  - Product preparation error [Unknown]
  - Product dispensing error [Unknown]
  - Counterfeit product administered [Unknown]
  - Malaise [Unknown]
  - Product odour abnormal [Unknown]
  - Balance disorder [Unknown]
  - Suspected counterfeit product [Unknown]
  - Hypertension [Unknown]
  - Insomnia [Unknown]
  - Gait disturbance [Unknown]
  - Pain [Unknown]
  - Drug ineffective [Not Recovered/Not Resolved]

NARRATIVE: CASE EVENT DATE: 20180213
